FAERS Safety Report 10884904 (Version 1)
Quarter: 2015Q1

REPORT INFORMATION
  Report Type: Spontaneous
  Country: US (occurrence: US)
  Receive Date: 20150304
  Receipt Date: 20150304
  Transmission Date: 20150721
  Serious: No
  Sender: FDA-Public Use
  Company Number: US-TEVA-487896USA

PATIENT
  Age: 48 Year
  Sex: Female
  Weight: 87.17 kg

DRUGS (4)
  1. MAXAIR [Concomitant]
     Active Substance: PIRBUTEROL ACETATE
     Indication: ASTHMA
  2. AMOXICILLIN. [Suspect]
     Active Substance: AMOXICILLIN
     Indication: PYREXIA
  3. ADVAIR HFA [Concomitant]
     Active Substance: FLUTICASONE PROPIONATE\SALMETEROL XINAFOATE
     Indication: ASTHMA
  4. AMOXICILLIN. [Suspect]
     Active Substance: AMOXICILLIN
     Indication: SINUSITIS

REACTIONS (2)
  - Dizziness [Recovering/Resolving]
  - Cerumen impaction [Recovered/Resolved]
